FAERS Safety Report 9147700 (Version 3)
Quarter: 2014Q2

REPORT INFORMATION
  Report Type: Spontaneous
  Country: DK (occurrence: DK)
  Receive Date: 20130307
  Receipt Date: 20140506
  Transmission Date: 20141212
  Serious: Yes (Disabling, Other)
  Sender: FDA-Public Use
  Company Number: DK-PFIZER INC-2013076895

PATIENT
  Age: 52 Year
  Sex: Female
  Weight: 70 kg

DRUGS (2)
  1. DEPO-MEDROL [Suspect]
     Indication: ROTATOR CUFF SYNDROME
     Dosage: ONE INJECTION, STRENGTH: 40 MG/ML
     Dates: start: 20050525, end: 20050525
  2. NASACORT [Suspect]
     Indication: HYPERSENSITIVITY
     Dosage: AS NEEDED,
     Route: 045
     Dates: start: 20090129, end: 20100216

REACTIONS (1)
  - Chorioretinopathy [Not Recovered/Not Resolved]
